FAERS Safety Report 11815826 (Version 2)
Quarter: 2016Q2

REPORT INFORMATION
  Report Type: Spontaneous
  Country: US (occurrence: US)
  Receive Date: 20151209
  Receipt Date: 20160628
  Transmission Date: 20160815
  Serious: Yes (Death, Life-Threatening, Other)
  Sender: FDA-Public Use
  Company Number: US-BRISTOL-MYERS SQUIBB COMPANY-BMS-2015-084799

PATIENT
  Sex: Male

DRUGS (1)
  1. OPDIVO [Suspect]
     Active Substance: NIVOLUMAB
     Indication: MALIGNANT NEOPLASM OF RENAL PELVIS
     Dosage: 189.13 MG, UNK
     Route: 042
     Dates: start: 20150722

REACTIONS (2)
  - Off label use [Unknown]
  - Death [Fatal]
